FAERS Safety Report 12310015 (Version 1)
Quarter: 2016Q2

REPORT INFORMATION
  Report Type: Spontaneous
  Country: US (occurrence: US)
  Receive Date: 20160427
  Receipt Date: 20160427
  Transmission Date: 20160815
  Serious: Yes (Other)
  Sender: FDA-Public Use
  Company Number: US-GLAXOSMITHKLINE-US2016056943

PATIENT

DRUGS (1)
  1. NICOTINE GUM [Suspect]
     Active Substance: NICOTINE
     Indication: SMOKING CESSATION THERAPY
     Dosage: 4 MG, UNK
     Route: 065

REACTIONS (6)
  - Cardiac disorder [Unknown]
  - Dizziness [Unknown]
  - Cerebrovascular accident [Unknown]
  - Neoplasm malignant [Unknown]
  - Nausea [Unknown]
  - Nicotine dependence [Unknown]
